FAERS Safety Report 13232120 (Version 1)
Quarter: 2017Q1

REPORT INFORMATION
  Report Type: Spontaneous
  Country: GB (occurrence: GB)
  Receive Date: 20170214
  Receipt Date: 20170214
  Transmission Date: 20170428
  Serious: Yes (Other)
  Sender: FDA-Public Use
  Company Number: GB-MYLANLABS-2017M1006641

PATIENT

DRUGS (5)
  1. NOVORAPID [Concomitant]
     Active Substance: INSULIN ASPART
     Indication: DIABETES MELLITUS
     Dosage: 100 IU, UNK
     Route: 058
  2. BRUFEN SYRUP [Suspect]
     Active Substance: IBUPROFEN
     Indication: INFLAMMATION
  3. LEVEMIR [Concomitant]
     Active Substance: INSULIN DETEMIR
     Indication: DIABETES MELLITUS
     Dosage: 100 IU, UNK
     Route: 058
  4. BRUFEN SYRUP [Suspect]
     Active Substance: IBUPROFEN
     Indication: PYREXIA
  5. BRUFEN SYRUP [Suspect]
     Active Substance: IBUPROFEN
     Indication: PAIN
     Dosage: 10 ML, TID
     Route: 048
     Dates: start: 20170120, end: 20170120

REACTIONS (1)
  - Blood glucose increased [Recovered/Resolved]

NARRATIVE: CASE EVENT DATE: 20170120
